FAERS Safety Report 8391621-2 (Version None)
Quarter: 2012Q2

REPORT INFORMATION
  Report Type: 
  Country: None (occurrence: None)
  Receive Date: 20120529
  Receipt Date: 20120518
  Transmission Date: 20120825
  Serious: Yes (Other)
  Sender: FDA-Public Use
  Company Number: US-ASTRAZENECA-2012SE32220

PATIENT
  Age: 54 Year
  Sex: Male
  Weight: 72.6 kg

DRUGS (5)
  1. MORPHINE [Concomitant]
     Indication: PAIN
  2. DILANTIN [Concomitant]
     Indication: PAIN
  3. NEXIUM [Suspect]
     Indication: GASTROOESOPHAGEAL REFLUX DISEASE
     Dosage: DAILY
     Route: 048
  4. PACLITAXEL [Concomitant]
     Indication: CHEMOTHERAPY
  5. CISPLATIN [Concomitant]
     Indication: CHEMOTHERAPY
     Dosage: EVERY 8 DAYS
     Route: 042

REACTIONS (2)
  - LUNG NEOPLASM MALIGNANT [None]
  - METASTATIC NEOPLASM [None]
